FAERS Safety Report 5532185-8 (Version None)
Quarter: 2007Q4

REPORT INFORMATION
  Report Type: 
  Country: None (occurrence: None)
  Receive Date: 20071203
  Receipt Date: 20071114
  Transmission Date: 20080405
  Serious: Yes (Death)
  Sender: FDA-Public Use
  Company Number: FR-AVENTIS-200713807FR

PATIENT
  Sex: Female

DRUGS (2)
  1. LOVENOX [Suspect]
     Indication: THROMBOSIS PROPHYLAXIS
     Dates: start: 20020101, end: 20020101
  2. VIT K ANTAGONISTS [Concomitant]
     Route: 048
     Dates: end: 20020101

REACTIONS (2)
  - CEREBRAL THROMBOSIS [None]
  - DRUG INEFFECTIVE [None]
